FAERS Safety Report 8021084 (Version 7)
Quarter: 2014Q1

REPORT INFORMATION
  Report Type: Spontaneous
  Country: US (occurrence: US)
  Receive Date: 20110705
  Receipt Date: 20140329
  Transmission Date: 20141002
  Serious: Yes (Hospitalization, Other)
  Sender: FDA-Public Use
  Company Number: US-ROCHE-769587

PATIENT
  Age: 15 Year
  Sex: Female
  Weight: 64.4 kg

DRUGS (3)
  1. ACCUTANE [Suspect]
     Indication: ACNE
     Route: 048
  2. ACCUTANE [Suspect]
     Route: 048
     Dates: start: 19990302, end: 19990621
  3. AMOXICILLIN [Concomitant]

REACTIONS (20)
  - Crohn^s disease [Unknown]
  - Colitis ulcerative [Unknown]
  - Enterocolitis haemorrhagic [Unknown]
  - Emotional distress [Unknown]
  - Inflammatory bowel disease [Unknown]
  - Depression [Unknown]
  - Bronchitis [Unknown]
  - Ulcerative keratitis [Unknown]
  - Intestinal stenosis [Unknown]
  - Erythema nodosum [Recovered/Resolved]
  - Episcleritis [Recovered/Resolved]
  - Abdominal abscess [Unknown]
  - Fistula [Unknown]
  - Intestinal obstruction [Unknown]
  - Blood cholesterol increased [Unknown]
  - Haemorrhoids [Unknown]
  - Blood triglycerides increased [Unknown]
  - Irritable bowel syndrome [Unknown]
  - Osteopenia [Unknown]
  - Lip dry [Unknown]
